FAERS Safety Report 7003262-X (Version None)
Quarter: 2010Q3

REPORT INFORMATION
  Report Type: 
  Country: None (occurrence: None)
  Receive Date: 20100920
  Receipt Date: 20100909
  Transmission Date: 20110219
  Serious: Yes (Other)
  Sender: FDA-Public Use
  Company Number: US-PFIZER INC-2010111407

PATIENT
  Sex: Female
  Weight: 95.24 kg

DRUGS (3)
  1. LYRICA [Suspect]
     Indication: SCIATICA
     Dosage: 50 MG, 3X/DAY
     Route: 048
     Dates: start: 20100301
  2. LYRICA [Suspect]
     Indication: NERVE INJURY
  3. XANAX [Concomitant]
     Indication: NEURALGIA
     Dosage: 0.25 MG, 2X/DAY
     Route: 048
     Dates: start: 20100101

REACTIONS (2)
  - JOINT SWELLING [None]
  - NEURALGIA [None]
